FAERS Safety Report 17293075 (Version 2)
Quarter: 2020Q2

REPORT INFORMATION
  Report Type: Report from Study
  Country: IN (occurrence: IN)
  Receive Date: 20200121
  Receipt Date: 20200403
  Transmission Date: 20200713
  Serious: Yes (Other)
  Sender: FDA-Public Use
  Company Number: NVSC2020IN011894

PATIENT
  Age: 62 Year
  Sex: Male
  Weight: 69 kg

DRUGS (1)
  1. GALVUS MET [Suspect]
     Active Substance: METFORMIN HYDROCHLORIDE\VILDAGLIPTIN
     Indication: DIABETES MELLITUS
     Dosage: 1 DF, BID (VILDAGLIPTIN 50/METFORMIN 500) (1-0-1) (POST MEAL)
     Route: 048

REACTIONS (5)
  - Glycosylated haemoglobin increased [Unknown]
  - Hyperglycaemia [Unknown]
  - Ear disorder [Not Recovered/Not Resolved]
  - Dizziness [Not Recovered/Not Resolved]
  - Gastric ulcer [Unknown]

NARRATIVE: CASE EVENT DATE: 20200211
